FAERS Safety Report 22628548 (Version 4)
Quarter: 2024Q1

REPORT INFORMATION
  Report Type: Other
  Country: NL (occurrence: None)
  Receive Date: 20230622
  Receipt Date: 20240215
  Transmission Date: 20240410
  Serious: No
  Sender: FDA-Public Use
  Company Number: NL-ROCHE-3373935

PATIENT
  Age: 64 Year
  Sex: Female
  Weight: 65 kg

DRUGS (25)
  1. OCRELIZUMAB [Suspect]
     Active Substance: OCRELIZUMAB
     Indication: Primary progressive multiple sclerosis
     Route: 042
     Dates: start: 20191028
  2. OCRELIZUMAB [Suspect]
     Active Substance: OCRELIZUMAB
     Route: 042
     Dates: start: 20230612, end: 20230612
  3. OCRELIZUMAB [Suspect]
     Active Substance: OCRELIZUMAB
     Route: 042
     Dates: start: 20201123, end: 20201123
  4. OCRELIZUMAB [Suspect]
     Active Substance: OCRELIZUMAB
     Route: 042
     Dates: start: 20191112, end: 20191112
  5. OCRELIZUMAB [Suspect]
     Active Substance: OCRELIZUMAB
     Route: 042
     Dates: start: 20221121, end: 20221121
  6. OCRELIZUMAB [Suspect]
     Active Substance: OCRELIZUMAB
     Route: 042
     Dates: start: 20211108, end: 20211108
  7. OCRELIZUMAB [Suspect]
     Active Substance: OCRELIZUMAB
     Route: 042
     Dates: start: 20210503, end: 20210503
  8. OCRELIZUMAB [Suspect]
     Active Substance: OCRELIZUMAB
     Route: 042
     Dates: start: 20200508, end: 20200508
  9. OCRELIZUMAB [Suspect]
     Active Substance: OCRELIZUMAB
     Route: 042
     Dates: start: 20220516, end: 20220516
  10. OCRELIZUMAB [Suspect]
     Active Substance: OCRELIZUMAB
     Route: 042
     Dates: start: 20231211, end: 20231211
  11. SOLU-MEDROL [Concomitant]
     Active Substance: METHYLPREDNISOLONE SODIUM SUCCINATE
     Route: 042
     Dates: start: 20221121, end: 20221121
  12. CLEMASTINE [Concomitant]
     Active Substance: CLEMASTINE
     Route: 048
     Dates: start: 20221121, end: 20221121
  13. ACETAMINOPHEN [Concomitant]
     Active Substance: ACETAMINOPHEN
     Route: 048
     Dates: start: 20221121, end: 20221121
  14. PANTOPRAZOLE [Concomitant]
     Active Substance: PANTOPRAZOLE
     Route: 048
     Dates: start: 20190603
  15. SUCRALFAAT [Concomitant]
     Route: 048
     Dates: start: 20190603
  16. CHOLECALCIFEROL [Concomitant]
     Active Substance: CHOLECALCIFEROL
     Route: 048
     Dates: start: 201504
  17. EUTHYROX [Concomitant]
     Active Substance: LEVOTHYROXINE SODIUM
     Route: 048
     Dates: start: 20111003
  18. OXAZEPAM [Concomitant]
     Active Substance: OXAZEPAM
     Route: 048
  19. TAPENTADOL [Concomitant]
     Active Substance: TAPENTADOL
     Route: 048
     Dates: start: 20190603
  20. HYDROQUINIDINE [Concomitant]
     Active Substance: HYDROQUINIDINE
     Route: 048
     Dates: start: 20190603
  21. FOLIC ACID [Concomitant]
     Active Substance: FOLIC ACID
     Route: 048
     Dates: start: 201705
  22. DUSPATALIN RETARD [Concomitant]
     Route: 048
     Dates: start: 20190603
  23. COSMETICS [Concomitant]
     Active Substance: COSMETICS
     Route: 061
  24. MEBEVERINE [Concomitant]
     Active Substance: MEBEVERINE
     Route: 048
  25. NAPROXEN [Concomitant]
     Active Substance: NAPROXEN
     Route: 048
     Dates: start: 20190603

REACTIONS (2)
  - Pneumonia [Recovered/Resolved]
  - SARS-CoV-2 test positive [Recovered/Resolved]

NARRATIVE: CASE EVENT DATE: 20221201
